FAERS Safety Report 7912654-3 (Version None)
Quarter: 2011Q4

REPORT INFORMATION
  Report Type: 
  Country: None (occurrence: None)
  Receive Date: 20111114
  Receipt Date: 20111107
  Transmission Date: 20120403
  Serious: Yes (Other)
  Sender: FDA-Public Use
  Company Number: US-UCBSA-045225

PATIENT
  Age: 27 Year
  Sex: Female

DRUGS (4)
  1. ZONISAMIDE [Concomitant]
     Indication: CONVULSION
     Dosage: UNKNOWN DOSAGE
  2. LEVETIRACETAM [Suspect]
     Indication: CONVULSION
     Route: 048
     Dates: start: 20100101
  3. LEVETIRACETAM [Suspect]
     Route: 048
     Dates: start: 20100204
  4. DIVALPROEX SODIUM [Concomitant]
     Indication: CONVULSION
     Dosage: UNKNWON DOSAGE

REACTIONS (3)
  - ANGER [None]
  - WITHDRAWAL SYNDROME [None]
  - IRRITABILITY [None]
